FAERS Safety Report 9056420 (Version 1)
Quarter: 2013Q1

REPORT INFORMATION
  Report Type: Spontaneous
  Country: US (occurrence: US)
  Receive Date: 20130204
  Receipt Date: 20130204
  Transmission Date: 20140127
  Serious: No
  Sender: FDA-Public Use
  Company Number: US-BAYER-2013-013537

PATIENT
  Sex: Male

DRUGS (1)
  1. CAMPHO-PHENIQUE [Suspect]
     Indication: ORAL HERPES
     Dosage: UNK
     Route: 061
     Dates: start: 20130121, end: 20130122

REACTIONS (3)
  - Throat irritation [Recovered/Resolved]
  - Application site pain [Recovered/Resolved]
  - Accidental exposure to product [None]
